FAERS Safety Report 17184866 (Version 1)
Quarter: 2019Q4

REPORT INFORMATION
  Report Type: Spontaneous
  Country: US (occurrence: US)
  Receive Date: 20191219
  Receipt Date: 20191219
  Transmission Date: 20200122
  Serious: Yes (Other)
  Sender: FDA-Public Use
  Company Number: None

PATIENT
  Age: 25 Year
  Sex: Female
  Weight: 49.5 kg

DRUGS (1)
  1. XULANE [Suspect]
     Active Substance: ETHINYL ESTRADIOL\NORELGESTROMIN
     Indication: HYPERSENSITIVITY
     Dates: start: 20190901, end: 20191217

REACTIONS (2)
  - Pharyngeal swelling [None]
  - Dysphagia [None]

NARRATIVE: CASE EVENT DATE: 20191218
